FAERS Safety Report 9905488 (Version 3)
Quarter: 2014Q1

REPORT INFORMATION
  Report Type: Spontaneous
  Country: JP (occurrence: JP)
  Receive Date: 20140218
  Receipt Date: 20140325
  Transmission Date: 20141002
  Serious: Yes (Other)
  Sender: FDA-Public Use
  Company Number: JP-ASTRAZENECA-2014SE10612

PATIENT
  Sex: Female

DRUGS (1)
  1. SYMBICORT TURBUHALER [Suspect]
     Dosage: 2 DF TWO TIMES A DAY
     Route: 055

REACTIONS (2)
  - Hand fracture [Unknown]
  - Fall [Unknown]
